FAERS Safety Report 11028066 (Version 2)
Quarter: 2015Q2

REPORT INFORMATION
  Report Type: Spontaneous
  Country: US (occurrence: US)
  Receive Date: 20150414
  Receipt Date: 20150525
  Transmission Date: 20150821
  Serious: No
  Sender: FDA-Public Use
  Company Number: US-JNJFOC-20120605585

PATIENT
  Sex: Female

DRUGS (1)
  1. ORTHO TRI CYCLEN [Suspect]
     Active Substance: ETHINYL ESTRADIOL\NORGESTIMATE
     Indication: GENERAL SYMPTOM
     Dosage: 10 YEARS AGO
     Route: 048

REACTIONS (2)
  - Migraine [Recovered/Resolved]
  - Product use issue [Not Recovered/Not Resolved]
